FAERS Safety Report 6659833-3 (Version None)
Quarter: 2010Q1

REPORT INFORMATION
  Report Type: 
  Country: None (occurrence: None)
  Receive Date: 20100330
  Receipt Date: 20100330
  Transmission Date: 20100710
  Serious: No
  Sender: FDA-Public Use
  Company Number: None

PATIENT
  Age: 77 Year
  Sex: Male
  Weight: 69.8539 kg

DRUGS (2)
  1. DOXAZOSIN MESYLATE [Suspect]
     Indication: MICTURITION DISORDER
     Dosage: 1/2 TO WHOLE (1) AT BEDTIME FOR A WEEK/THEN FULL PILL
     Dates: start: 20091029, end: 20091110
  2. DOXAZOSIN MESYLATE [Concomitant]

REACTIONS (3)
  - BLOOD PRESSURE FLUCTUATION [None]
  - FEELING ABNORMAL [None]
  - HEART RATE INCREASED [None]
